FAERS Safety Report 7553580-1 (Version None)
Quarter: 2011Q2

REPORT INFORMATION
  Report Type: 
  Country: None (occurrence: None)
  Receive Date: 20110617
  Receipt Date: 20101119
  Transmission Date: 20111010
  Serious: No
  Sender: FDA-Public Use
  Company Number: US-MYLANLABS-2010S1021490

PATIENT
  Sex: Female

DRUGS (1)
  1. GLIPIZIDE [Suspect]
     Route: 048
     Dates: start: 20100801

REACTIONS (1)
  - TUMOUR MARKER INCREASED [None]
